FAERS Safety Report 6830284-1 (Version None)
Quarter: 2010Q3

REPORT INFORMATION
  Report Type: 
  Country: None (occurrence: None)
  Receive Date: 20100712
  Receipt Date: 20100701
  Transmission Date: 20110219
  Serious: Yes (Hospitalization)
  Sender: FDA-Public Use
  Company Number: US-BIOGENIDEC-2010BI022482

PATIENT
  Age: 38 Year
  Sex: Female
  Weight: 56 kg

DRUGS (2)
  1. TYSABRI [Suspect]
     Indication: MULTIPLE SCLEROSIS
     Dates: start: 20071026
  2. OXYCODONE HCL AND ACETAMINOPHEN [Concomitant]
     Indication: PAIN

REACTIONS (9)
  - ATTENTION DEFICIT/HYPERACTIVITY DISORDER [None]
  - COLONIC POLYP [None]
  - DIZZINESS [None]
  - HAEMORRHOIDS [None]
  - INCISION SITE PAIN [None]
  - MOVEMENT DISORDER [None]
  - POSTOPERATIVE WOUND INFECTION [None]
  - RECTAL PROLAPSE [None]
  - TREMOR [None]
